FAERS Safety Report 9552367 (Version 1)
Quarter: 2013Q3

REPORT INFORMATION
  Report Type: Spontaneous
  Country: JP (occurrence: JP)
  Receive Date: 20130925
  Receipt Date: 20130925
  Transmission Date: 20140515
  Serious: Yes (Hospitalization)
  Sender: FDA-Public Use
  Company Number: JP-ASTELLAS-2013JP009742

PATIENT
  Age: 40 Year
  Sex: Male

DRUGS (3)
  1. PROGRAF [Suspect]
     Indication: COLITIS ULCERATIVE
     Dosage: UNK
     Route: 065
     Dates: start: 20120515
  2. PREDNISOLONE [Concomitant]
     Indication: COLITIS ULCERATIVE
     Dosage: 60 MG, UNKNOWN/D
     Route: 065
  3. PREDNISOLONE [Concomitant]
     Dosage: 30 MG, UNKNOWN/D
     Route: 065

REACTIONS (2)
  - Drug ineffective [Unknown]
  - Colitis ulcerative [Recovering/Resolving]
